FAERS Safety Report 6878079-7 (Version None)
Quarter: 2010Q2

REPORT INFORMATION
  Report Type: 
  Country: None (occurrence: None)
  Receive Date: 20100616
  Receipt Date: 20100329
  Transmission Date: 20101027
  Serious: No
  Sender: FDA-Public Use
  Company Number: DSA_40603_2009

PATIENT
  Sex: Female

DRUGS (26)
  1. XENAZINE [Suspect]
     Indication: CHOREA
     Dosage: (12.5 MG BID ORAL), (12.5 MG QD ORAL), (HALF OF A TABLET IN THE MORNING AND A TABLET AT NIGHT ORAL)
     Route: 048
     Dates: start: 20090728, end: 20090730
  2. XENAZINE [Suspect]
     Indication: TARDIVE DYSKINESIA
     Dosage: (12.5 MG BID ORAL), (12.5 MG QD ORAL), (HALF OF A TABLET IN THE MORNING AND A TABLET AT NIGHT ORAL)
     Route: 048
     Dates: start: 20090728, end: 20090730
  3. XENAZINE [Suspect]
     Indication: TREMOR
     Dosage: (12.5 MG BID ORAL), (12.5 MG QD ORAL), (HALF OF A TABLET IN THE MORNING AND A TABLET AT NIGHT ORAL)
     Route: 048
     Dates: start: 20090728, end: 20090730
  4. XENAZINE [Suspect]
     Indication: CHOREA
     Dosage: (12.5 MG BID ORAL), (12.5 MG QD ORAL), (HALF OF A TABLET IN THE MORNING AND A TABLET AT NIGHT ORAL)
     Route: 048
     Dates: start: 20090731, end: 20090818
  5. XENAZINE [Suspect]
     Indication: TARDIVE DYSKINESIA
     Dosage: (12.5 MG BID ORAL), (12.5 MG QD ORAL), (HALF OF A TABLET IN THE MORNING AND A TABLET AT NIGHT ORAL)
     Route: 048
     Dates: start: 20090731, end: 20090818
  6. XENAZINE [Suspect]
     Indication: TREMOR
     Dosage: (12.5 MG BID ORAL), (12.5 MG QD ORAL), (HALF OF A TABLET IN THE MORNING AND A TABLET AT NIGHT ORAL)
     Route: 048
     Dates: start: 20090731, end: 20090818
  7. XENAZINE [Suspect]
     Indication: CHOREA
     Dosage: (12.5 MG BID ORAL), (12.5 MG QD ORAL), (HALF OF A TABLET IN THE MORNING AND A TABLET AT NIGHT ORAL)
     Route: 048
     Dates: start: 20091201
  8. XENAZINE [Suspect]
     Indication: TARDIVE DYSKINESIA
     Dosage: (12.5 MG BID ORAL), (12.5 MG QD ORAL), (HALF OF A TABLET IN THE MORNING AND A TABLET AT NIGHT ORAL)
     Route: 048
     Dates: start: 20091201
  9. XENAZINE [Suspect]
     Indication: TREMOR
     Dosage: (12.5 MG BID ORAL), (12.5 MG QD ORAL), (HALF OF A TABLET IN THE MORNING AND A TABLET AT NIGHT ORAL)
     Route: 048
     Dates: start: 20091201
  10. ACTONEL [Concomitant]
  11. DILAUDID [Concomitant]
  12. OXYCODONE [Concomitant]
  13. HUMALOG [Concomitant]
  14. CLONAZEPAM [Concomitant]
  15. CARAFATE [Concomitant]
  16. SYNTHROID [Concomitant]
  17. PRILOSEC [Concomitant]
  18. ULTRASE /00150201/ [Concomitant]
  19. NITROGLYCERIN [Concomitant]
  20. RESTASIS [Concomitant]
  21. MIRALAX [Concomitant]
  22. M.V.I. [Concomitant]
  23. PHENERGAN [Concomitant]
  24. ORTRASE [Concomitant]
  25. MYLPEG [Concomitant]
  26. AMLODIPINE [Concomitant]

REACTIONS (21)
  - ABDOMINAL PAIN UPPER [None]
  - AGITATION [None]
  - ALOPECIA [None]
  - ANTISOCIAL BEHAVIOUR [None]
  - CRYING [None]
  - DECREASED APPETITE [None]
  - DEPRESSION [None]
  - DISTURBANCE IN ATTENTION [None]
  - DRUG ADMINISTRATION ERROR [None]
  - DYSPHAGIA [None]
  - FATIGUE [None]
  - FEELING GUILTY [None]
  - GAIT DISTURBANCE [None]
  - HYPERHIDROSIS [None]
  - INSOMNIA [None]
  - MEMORY IMPAIRMENT [None]
  - MUSCULOSKELETAL STIFFNESS [None]
  - NERVOUSNESS [None]
  - OEDEMA PERIPHERAL [None]
  - PYREXIA [None]
  - TREMOR [None]
